FAERS Safety Report 5509366-2 (Version None)
Quarter: 2007Q4

REPORT INFORMATION
  Report Type: 
  Country: None (occurrence: None)
  Receive Date: 20071107
  Receipt Date: 20071026
  Transmission Date: 20080405
  Serious: Yes (Other)
  Sender: FDA-Public Use
  Company Number: FR-PFIZER INC-2007090799

PATIENT
  Age: 76 Year
  Sex: Male

DRUGS (4)
  1. LYRICA [Suspect]
     Indication: NEUROPATHY PERIPHERAL
  2. VALSARTAN [Concomitant]
  3. LEVOTHYROXINE SODIUM [Concomitant]
  4. PLAVIX [Concomitant]

REACTIONS (2)
  - DILATATION VENTRICULAR [None]
  - DYSPNOEA EXERTIONAL [None]
